FAERS Safety Report 14619675 (Version 2)
Quarter: 2018Q1

REPORT INFORMATION
  Report Type: Report from Study
  Country: US (occurrence: US)
  Receive Date: 20180309
  Receipt Date: 20180327
  Transmission Date: 20180509
  Serious: Yes (Other)
  Sender: FDA-Public Use
  Company Number: US-GILEAD-2017-0281034

PATIENT
  Age: 37 Year
  Sex: Female
  Weight: 140.59 kg

DRUGS (3)
  1. PRENATAL VITAMINS                  /02014401/ [Concomitant]
     Active Substance: VITAMINS
     Indication: SUPPLEMENTATION THERAPY
  2. GLYBURIDE. [Concomitant]
     Active Substance: GLYBURIDE
     Indication: GESTATIONAL DIABETES
  3. RANOLAZINE. [Suspect]
     Active Substance: RANOLAZINE
     Indication: LONG QT SYNDROME CONGENITAL
     Dosage: 1000 MG, ONCE
     Route: 048
     Dates: start: 20170601, end: 20170601

REACTIONS (2)
  - Maternal exposure during pregnancy [Recovered/Resolved]
  - Gestational diabetes [Recovered/Resolved]

NARRATIVE: CASE EVENT DATE: 20170601
